FAERS Safety Report 9645236 (Version 2)
Quarter: 2013Q4

REPORT INFORMATION
  Report Type: Spontaneous
  Country: DE (occurrence: DE)
  Receive Date: 20131025
  Receipt Date: 20131108
  Transmission Date: 20140711
  Serious: Yes (Hospitalization, Other)
  Sender: FDA-Public Use
  Company Number: DE-TEVA-438575GER

PATIENT
  Age: 69 Year
  Sex: Female
  Weight: 85 kg

DRUGS (1)
  1. AMIODARON-RATIOPHARM 150 MG / 3 ML INJEKTIONSL?SUNG [Suspect]
     Indication: ATRIAL FIBRILLATION
     Route: 042
     Dates: start: 20130821, end: 20130823

REACTIONS (1)
  - Soft tissue necrosis [Recovered/Resolved]
